FAERS Safety Report 12682068 (Version 3)
Quarter: 2017Q1

REPORT INFORMATION
  Report Type: Report from Study
  Country: CA (occurrence: CA)
  Receive Date: 20160824
  Receipt Date: 20170213
  Transmission Date: 20170428
  Serious: Yes (Other)
  Sender: FDA-Public Use
  Company Number: CA-GILEAD-2016-0229757

PATIENT
  Age: 58 Year
  Sex: Male

DRUGS (2)
  1. IBAVYR [Suspect]
     Active Substance: RIBAVIRIN
     Indication: CHRONIC HEPATITIS C
     Dosage: 1000 MG, QD
     Route: 048
     Dates: start: 20160216
  2. LEDIPASVIR/SOFOSBUVIR [Suspect]
     Active Substance: LEDIPASVIR\SOFOSBUVIR
     Indication: CHRONIC HEPATITIS C
     Dosage: 1 DF, QD
     Route: 048
     Dates: start: 20160216

REACTIONS (6)
  - Hepatic cirrhosis [Unknown]
  - Transplant evaluation [Unknown]
  - Hepatitis C [Unknown]
  - Hepatocellular carcinoma [Not Recovered/Not Resolved]
  - Child-Pugh-Turcotte score increased [Unknown]
  - Drug ineffective [Unknown]
